FAERS Safety Report 4562406-X (Version None)
Quarter: 2005Q1

REPORT INFORMATION
  Report Type: 
  Country: None (occurrence: None)
  Receive Date: 20050127
  Receipt Date: 20040901
  Transmission Date: 20050727
  Serious: No
  Sender: FDA-Public Use
  Company Number: US-BRISTOL-MYERS SQUIBB COMPANY-12689428

PATIENT
  Age: 78 Year
  Sex: Female
  Weight: 63 kg

DRUGS (3)
  1. KENALOG [Suspect]
     Indication: ARTHRALGIA
     Dosage: ROUTE: INJECTION
     Route: 051
     Dates: start: 20040810, end: 20040810
  2. LIDOCAINE [Concomitant]
     Dosage: ROUTE: INJECTION
     Dates: start: 20040810, end: 20040810
  3. MARCAINE [Concomitant]
     Dosage: ROUTE: INJECTION
     Dates: start: 20040810, end: 20040810

REACTIONS (1)
  - PAIN [None]
